FAERS Safety Report 7283750-1 (Version None)
Quarter: 2011Q1

REPORT INFORMATION
  Report Type: 
  Country: None (occurrence: None)
  Receive Date: 20110209
  Receipt Date: 20110127
  Transmission Date: 20110831
  Serious: Yes (Other)
  Sender: FDA-Public Use
  Company Number: DE-GENENTECH-305902

PATIENT
  Age: 63 Year
  Sex: Male
  Weight: 83.5 kg

DRUGS (14)
  1. RITUXIMAB [Suspect]
     Indication: LEUKAEMIA
     Dosage: 750 UNK, UNK
     Route: 042
     Dates: start: 20100629
  2. RITUXIMAB [Suspect]
     Dosage: UNK
     Route: 042
     Dates: end: 20100928
  3. LYRICA [Concomitant]
     Indication: PRODUCT USED FOR UNKNOWN INDICATION
     Dosage: 75 MG, X3
  4. CLEXANE [Concomitant]
     Indication: PRODUCT USED FOR UNKNOWN INDICATION
     Dosage: UNK
     Dates: start: 20100623
  5. SIMVASTATIN [Concomitant]
     Indication: PRODUCT USED FOR UNKNOWN INDICATION
     Dosage: UNK
  6. NEULASTA [Concomitant]
     Indication: PRODUCT USED FOR UNKNOWN INDICATION
     Dosage: UNK
     Dates: start: 20100730, end: 20100730
  7. TOREM [Concomitant]
     Indication: PRODUCT USED FOR UNKNOWN INDICATION
     Dosage: UNK
     Dates: start: 20100101
  8. FLUDARA [Suspect]
     Indication: LEUKAEMIA
     Dosage: UNK
     Route: 042
     Dates: start: 20100630
  9. FLUDARA [Suspect]
     Dosage: UNK
     Route: 042
     Dates: end: 20100928
  10. BISOPROLOL [Concomitant]
     Indication: PRODUCT USED FOR UNKNOWN INDICATION
     Dosage: UNK
  11. CYCLOPHOSPHAMIDE [Suspect]
     Indication: LEUKAEMIA
     Dosage: UNK
     Route: 042
     Dates: start: 20100630
  12. CYCLOPHOSPHAMIDE [Suspect]
     Route: 042
  13. INSULIN [Concomitant]
     Indication: PRODUCT USED FOR UNKNOWN INDICATION
     Dosage: UNK
     Dates: start: 19990101
  14. CYCLOPHOSPHAMIDE [Suspect]
     Dosage: 125 MG/M2, UNK
     Route: 042
     Dates: end: 20100928

REACTIONS (3)
  - HYPONATRAEMIA [None]
  - GASTROENTERITIS [None]
  - HYPOTENSION [None]
